FAERS Safety Report 9684626 (Version 1)
Quarter: 2013Q4

REPORT INFORMATION
  Report Type: Spontaneous
  Country: US (occurrence: US)
  Receive Date: 20131112
  Receipt Date: 20131112
  Transmission Date: 20140711
  Serious: Yes (Hospitalization, Other)
  Sender: FDA-Public Use
  Company Number: US-ABBVIE-13P-163-1166767-00

PATIENT
  Age: 66 Year
  Sex: Male
  Weight: 84.44 kg

DRUGS (1)
  1. ANDROGEL [Suspect]
     Indication: BLOOD TESTOSTERONE DECREASED
     Route: 061
     Dates: start: 20130614, end: 201310

REACTIONS (2)
  - Neoplasm of thymus [Recovering/Resolving]
  - Drug administered at inappropriate site [Not Recovered/Not Resolved]
